FAERS Safety Report 20776787 (Version 6)
Quarter: 2022Q3

REPORT INFORMATION
  Report Type: Report from Study
  Country: US (occurrence: US)
  Receive Date: 20220502
  Receipt Date: 20220811
  Transmission Date: 20221027
  Serious: Yes (Other)
  Sender: FDA-Public Use
  Company Number: US-PFIZER INC-202200641248

PATIENT
  Age: 78 Year
  Sex: Female

DRUGS (1)
  1. ZOLOFT [Suspect]
     Active Substance: SERTRALINE HYDROCHLORIDE
     Indication: Depression
     Dosage: 100 MG, 2X/DAY (TAKE 1 TABLET(S) TWICE A DAY BY ORAL ROUTE)
     Route: 048

REACTIONS (4)
  - Cardiac failure [Unknown]
  - Product dose omission issue [Unknown]
  - Withdrawal syndrome [Unknown]
  - Malaise [Unknown]
